FAERS Safety Report 9426837 (Version 1)
Quarter: 2013Q3

REPORT INFORMATION
  Report Type: Spontaneous
  Country: US (occurrence: US)
  Receive Date: 20130730
  Receipt Date: 20130730
  Transmission Date: 20140515
  Serious: No
  Sender: FDA-Public Use
  Company Number: US-SANOFI-AVENTIS-2013SA043338

PATIENT
  Age: 50 Year
  Sex: Male

DRUGS (7)
  1. AMBIEN [Suspect]
  2. LIPITOR [Suspect]
     Route: 048
  3. NITROSTAT [Concomitant]
     Indication: CHEST DISCOMFORT
     Route: 060
  4. DILTIAZEM [Concomitant]
     Route: 048
  5. TRICOR [Concomitant]
     Indication: HYPERTRIGLYCERIDAEMIA
     Route: 048
  6. COUMADIN [Concomitant]
     Indication: ATRIAL FLUTTER
     Route: 048
  7. COUMADIN [Concomitant]
     Indication: ATRIAL FLUTTER
     Route: 048

REACTIONS (2)
  - Confusional state [Unknown]
  - Drug intolerance [Unknown]
